FAERS Safety Report 5551857-2 (Version None)
Quarter: 2007Q4

REPORT INFORMATION
  Report Type: 
  Country: None (occurrence: None)
  Receive Date: 20071212
  Receipt Date: 20070602
  Transmission Date: 20080405
  Serious: No
  Sender: FDA-Public Use
  Company Number: US-AMGEN-KDL227513

PATIENT

DRUGS (3)
  1. ENBREL [Suspect]
     Indication: PSORIASIS
     Dates: start: 20070602
  2. IMIPRAMINE [Concomitant]
  3. OLUX [Concomitant]

REACTIONS (1)
  - INJECTION SITE PAIN [None]
